FAERS Safety Report 16577793 (Version 1)
Quarter: 2019Q3

REPORT INFORMATION
  Report Type: Report from Study
  Country: US (occurrence: US)
  Receive Date: 20190716
  Receipt Date: 20190716
  Transmission Date: 20191004
  Serious: Yes (Hospitalization, Other)
  Sender: FDA-Public Use
  Company Number: US-JNJFOC-20190208834

PATIENT
  Sex: Female

DRUGS (3)
  1. IMBRUVICA [Suspect]
     Active Substance: IBRUTINIB
     Indication: LYMPHOCYTIC LEUKAEMIA
     Route: 048
     Dates: start: 20190102
  2. IMBRUVICA [Suspect]
     Active Substance: IBRUTINIB
     Route: 048
     Dates: start: 20190104
  3. IMBRUVICA [Suspect]
     Active Substance: IBRUTINIB
     Route: 048
     Dates: start: 20190212

REACTIONS (14)
  - Nasopharyngitis [Unknown]
  - Gingival bleeding [Not Recovered/Not Resolved]
  - Nausea [Unknown]
  - Eye pain [Unknown]
  - Stomatitis [Not Recovered/Not Resolved]
  - Anaemia [Not Recovered/Not Resolved]
  - Bone disorder [Unknown]
  - Muscle spasms [Unknown]
  - Depression [Unknown]
  - Headache [Unknown]
  - Blood calcium decreased [Recovered/Resolved]
  - Taste disorder [Unknown]
  - Arthropathy [Unknown]
  - Blood count abnormal [Recovering/Resolving]

NARRATIVE: CASE EVENT DATE: 2019
